FAERS Safety Report 8451575-7 (Version None)
Quarter: 2012Q2

REPORT INFORMATION
  Report Type: 
  Country: None (occurrence: None)
  Receive Date: 20120620
  Receipt Date: 20120611
  Transmission Date: 20120825
  Serious: Yes (Hospitalization)
  Sender: FDA-Public Use
  Company Number: CA-JNJFOC-20120605399

PATIENT
  Sex: Male
  Weight: 51 kg

DRUGS (9)
  1. OMEPRAZOLE [Concomitant]
     Route: 065
  2. FUROSEMIDE [Concomitant]
     Route: 065
  3. ACTONEL [Concomitant]
     Route: 065
  4. PREDNISONE TAB [Concomitant]
     Route: 065
  5. FERROUS SULFATE TAB [Concomitant]
     Route: 065
  6. REMICADE [Suspect]
     Indication: RHEUMATOID ARTHRITIS
     Route: 042
     Dates: start: 20050623
  7. OXAZEPAM [Concomitant]
     Route: 065
  8. HYDROCHLOROTHIAZIDE [Concomitant]
     Route: 065
  9. MINITRANS [Concomitant]
     Route: 065

REACTIONS (1)
  - BLOOD POTASSIUM INCREASED [None]
